FAERS Safety Report 16170623 (Version 1)
Quarter: 2019Q2

REPORT INFORMATION
  Report Type: Report from Study
  Country: NL (occurrence: NL)
  Receive Date: 20190408
  Receipt Date: 20190408
  Transmission Date: 20190711
  Serious: Yes (Other)
  Sender: FDA-Public Use
  Company Number: NL-MYLANLABS-2019M1031827

PATIENT
  Age: 28 Year
  Sex: Female
  Weight: 69.6 kg

DRUGS (2)
  1. THIOSIX [Suspect]
     Active Substance: THIOGUANINE ANHYDROUS
     Indication: INFLAMMATORY BOWEL DISEASE
     Dosage: 20 MILLIGRAM DAILY;
     Route: 065
     Dates: start: 20170304, end: 20170405
  2. AZATHIOPRINE. [Suspect]
     Active Substance: AZATHIOPRINE
     Indication: INFLAMMATORY BOWEL DISEASE
     Dosage: UNK
     Route: 065
     Dates: start: 20161118, end: 20170223

REACTIONS (6)
  - Leukopenia [Unknown]
  - Maternal exposure during pregnancy [Recovered/Resolved]
  - Anaemia [Unknown]
  - Drug ineffective [Unknown]
  - Liver disorder [Unknown]
  - Normal newborn [Recovered/Resolved]

NARRATIVE: CASE EVENT DATE: 20170530
